FAERS Safety Report 4698836-5 (Version None)
Quarter: 2005Q2

REPORT INFORMATION
  Report Type: 
  Country: None (occurrence: None)
  Receive Date: 20050623
  Receipt Date: 20050610
  Transmission Date: 20051028
  Serious: Yes (Other)
  Sender: FDA-Public Use
  Company Number: 2005086866

PATIENT
  Age: 79 Year
  Sex: Female
  Weight: 88.905 kg

DRUGS (3)
  1. BENADRYL [Suspect]
     Indication: RASH
     Dosage: SMALL AMT, ONCE, TOPICAL
     Route: 061
     Dates: start: 20050610, end: 20050610
  2. IBUPROFEN [Concomitant]
  3. CARBAMAZEPINE [Concomitant]

REACTIONS (5)
  - BLISTER [None]
  - LOCAL SWELLING [None]
  - NASOPHARYNGEAL DISORDER [None]
  - ORAL MUCOSAL BLISTERING [None]
  - SWELLING FACE [None]
